FAERS Safety Report 5967685-X (Version None)
Quarter: 2008Q4

REPORT INFORMATION
  Report Type: 
  Country: None (occurrence: None)
  Receive Date: 20081126
  Receipt Date: 20081121
  Transmission Date: 20090506
  Serious: Yes (Hospitalization)
  Sender: FDA-Public Use
  Company Number: PHHY2008CL29208

PATIENT
  Age: 81 Year
  Sex: Female

DRUGS (1)
  1. LEPONEX [Suspect]
     Indication: SCHIZOPHRENIA
     Dosage: 3 DF, QD
     Dates: start: 19950101

REACTIONS (2)
  - BLOOD GLUCOSE ABNORMAL [None]
  - URINARY TRACT INFECTION [None]
